FAERS Safety Report 19855002 (Version 1)
Quarter: 2021Q3

REPORT INFORMATION
  Report Type: Spontaneous
  Country: US (occurrence: US)
  Receive Date: 20210920
  Receipt Date: 20210920
  Transmission Date: 20211014
  Serious: Yes (Other)
  Sender: FDA-Public Use
  Company Number: US-SUN PHARMACEUTICAL INDUSTRIES LTD-2021R1-311775

PATIENT
  Age: 48 Year
  Sex: Male

DRUGS (3)
  1. ARGATROBAN. [Concomitant]
     Active Substance: ARGATROBAN
     Indication: THROMBOCYTOPENIA
     Dosage: UNK
     Route: 042
  2. PREDNISONE. [Suspect]
     Active Substance: PREDNISONE
     Indication: THROMBOCYTOPENIA
     Dosage: 1 MILLIGRAM/KILOGRAM
     Route: 065
  3. IMMUNOGLOBULINS [Concomitant]
     Indication: THROMBOCYTOPENIA
     Dosage: 1 G/KG
     Route: 042

REACTIONS (1)
  - Immune thrombocytopenia [Unknown]
